FAERS Safety Report 8880846 (Version 1)
Quarter: 2012Q4

REPORT INFORMATION
  Report Type: 
  Country: FR (occurrence: FR)
  Receive Date: 20121101
  Receipt Date: 20121101
  Transmission Date: 20130627
  Serious: Yes (Hospitalization)
  Sender: FDA-Public Use
  Company Number: FR-ASTRAZENECA-2012SE81997

PATIENT
  Age: 928 Month
  Sex: Male

DRUGS (4)
  1. CRESTOR [Suspect]
     Indication: PROPHYLAXIS
     Route: 048
     Dates: start: 2005, end: 20120927
  2. AMLOR [Concomitant]
     Route: 048
     Dates: start: 2005
  3. KARDEGIC [Concomitant]
     Route: 048
     Dates: start: 2005
  4. OMEPRAZOLE [Concomitant]
     Route: 048
     Dates: start: 2005

REACTIONS (3)
  - Interstitial lung disease [Recovering/Resolving]
  - Pneumothorax [Unknown]
  - Lymphadenopathy mediastinal [Unknown]
